FAERS Safety Report 6700643-6 (Version None)
Quarter: 2010Q2

REPORT INFORMATION
  Report Type: 
  Country: None (occurrence: None)
  Receive Date: 20100428
  Receipt Date: 20100421
  Transmission Date: 20101027
  Serious: Yes (Hospitalization)
  Sender: FDA-Public Use
  Company Number: AU-B.I. PHARMACEUTICALS,INC./RIDGEFIELD-2010-AU-00323AU

PATIENT
  Sex: Female

DRUGS (3)
  1. MOBIC [Suspect]
     Indication: MUSCLE STRAIN
     Dosage: 15 MG
  2. ZYRTEC [Concomitant]
  3. PANADOL [Concomitant]

REACTIONS (14)
  - ABDOMINAL DISCOMFORT [None]
  - ARTHRALGIA [None]
  - COUGH [None]
  - DYSPHAGIA [None]
  - HEADACHE [None]
  - HEPATIC ENZYME INCREASED [None]
  - INSOMNIA [None]
  - JOINT CREPITATION [None]
  - JOINT SWELLING [None]
  - LARYNGITIS [None]
  - NAUSEA [None]
  - OROPHARYNGEAL PAIN [None]
  - POLLAKIURIA [None]
  - SINUSITIS [None]
